FAERS Safety Report 6354208-9 (Version None)
Quarter: 2009Q3

REPORT INFORMATION
  Report Type: 
  Country: None (occurrence: None)
  Receive Date: 20090914
  Receipt Date: 20090902
  Transmission Date: 20100115
  Serious: Yes (Hospitalization, Other)
  Sender: FDA-Public Use
  Company Number: PHHY2009JP23856

PATIENT
  Sex: Female
  Weight: 44 kg

DRUGS (8)
  1. ICL670A ICL+DISTAB [Suspect]
     Indication: IRON OVERLOAD
     Dosage: 1000 MG DAILY
     Route: 048
     Dates: start: 20081015
  2. ICL670A ICL+DISTAB [Suspect]
     Indication: MYELOFIBROSIS
  3. LENDORMIN [Concomitant]
     Dosage: 0.25 MG
     Route: 048
     Dates: start: 20081015, end: 20090311
  4. LASIX [Concomitant]
     Dosage: 20 MG
     Route: 048
     Dates: start: 20081015
  5. ALDACTONE [Concomitant]
     Dosage: 25 MG
     Route: 048
     Dates: start: 20081015
  6. ASPIRIN [Concomitant]
     Dosage: 100 MG
     Route: 048
     Dates: start: 20081015
  7. ZYLORIC [Concomitant]
     Dosage: 100 MG
     Route: 048
     Dates: start: 20081015
  8. MYSLEE [Concomitant]
     Dosage: 5 MG
     Route: 048
     Dates: start: 20090312

REACTIONS (5)
  - ESCHERICHIA INFECTION [None]
  - INFECTION SUSCEPTIBILITY INCREASED [None]
  - PYREXIA [None]
  - SEPSIS [None]
  - URINARY TRACT INFECTION [None]
